FAERS Safety Report 9555614 (Version 2)
Quarter: 2013Q4

REPORT INFORMATION
  Report Type: Spontaneous
  Country: US (occurrence: US)
  Receive Date: 20130926
  Receipt Date: 20131009
  Transmission Date: 20140711
  Serious: Yes (Life-Threatening, Hospitalization, Other)
  Sender: FDA-Public Use
  Company Number: US-PFIZER INC-2013275652

PATIENT
  Age: 59 Year
  Sex: Female
  Weight: 69.84 kg

DRUGS (10)
  1. CELEBREX [Suspect]
     Indication: ARTHRITIS
     Dosage: 200 MG, 1X/DAY
     Route: 048
  2. CADUET [Suspect]
     Dosage: UNK
  3. AMLODIPINE [Concomitant]
     Dosage: 5 MG, UNK
  4. LOSARTAN/HYDROCHLOROTHIAZIDE [Concomitant]
     Dosage: 50/12.5 MG, 1X/DAY
  5. BABY ASPIRIN [Concomitant]
     Dosage: UNK
  6. FISH OIL [Concomitant]
     Dosage: UNK
  7. FEXOFENADINE HYDROCHLORIDE [Concomitant]
     Dosage: 180 MG, UNK
  8. MAGNESIUM [Concomitant]
     Dosage: UNK
  9. CENTRUM SILVER WOMEN^S 50+ [Concomitant]
     Dosage: UNK
  10. GEMFIBROZIL [Concomitant]
     Dosage: 600 MG, 2X/DAY

REACTIONS (4)
  - Apparent death [Unknown]
  - Loss of consciousness [Unknown]
  - Diabetes mellitus [Not Recovered/Not Resolved]
  - Weight decreased [Unknown]
